FAERS Safety Report 24424465 (Version 1)
Quarter: 2024Q4

REPORT INFORMATION
  Report Type: Spontaneous
  Country: CN (occurrence: CN)
  Receive Date: 20241010
  Receipt Date: 20241010
  Transmission Date: 20250115
  Serious: Yes (Other)
  Sender: AMERICAN REGENT
  Company Number: CN-AMERICAN REGENT INC-2024003803

PATIENT
  Age: 45 Year
  Sex: Female
  Weight: 63.4 kg

DRUGS (2)
  1. VENOFER [Suspect]
     Active Substance: IRON SUCROSE
     Indication: Anaemia
     Dosage: 1 X,/ DAY DILUTED IN 0.9 PERCENT SODIUM CHLORIDE INJECTION 200 ML (100 MG,1 IN 1 D)
     Dates: start: 20240924, end: 20240924
  2. CEFMETAZOLE SODIUM [Concomitant]
     Active Substance: CEFMETAZOLE SODIUM
     Indication: Infection prophylaxis
     Dosage: 1.0G IVGTT BID DILUTED IN 0.9 PERCENT SODIUM CHLORIDE INJECTION 100ML (1 GM,2 IN 1 D)
     Dates: start: 20240924, end: 20240926

REACTIONS (6)
  - Tremor [Recovered/Resolved]
  - Pallor [Recovered/Resolved]
  - Chills [Recovered/Resolved]
  - Sinus tachycardia [Recovered/Resolved]
  - Pyrexia [Recovered/Resolved]
  - Blood pressure increased [Recovered/Resolved]

NARRATIVE: CASE EVENT DATE: 20240924
